FAERS Safety Report 5052911-4 (Version None)
Quarter: 2006Q3

REPORT INFORMATION
  Report Type: 
  Country: None (occurrence: None)
  Receive Date: 20060712
  Receipt Date: 20060629
  Transmission Date: 20061208
  Serious: Yes (Hospitalization)
  Sender: FDA-Public Use
  Company Number: TRP_0806_2006

PATIENT
  Age: 57 Year
  Sex: Female

DRUGS (6)
  1. RIBASPHERE [Suspect]
     Indication: HEPATITIS C
     Dosage: 1200 MG QDAY PO
     Route: 048
     Dates: start: 20060130, end: 20060101
  2. PEGASYS [Suspect]
     Indication: HEPATITIS C
     Dates: start: 20060130, end: 20060525
  3. RIBASPHERE [Suspect]
     Indication: HEPATITIS C
     Dosage: 1000 MG QDAY PO
     Route: 048
     Dates: start: 20060101
  4. PEGASYS [Suspect]
     Indication: HEPATITIS C
     Dosage: 135 MCG QWK SC
     Route: 058
     Dates: start: 20060101
  5. COUMADIN [Concomitant]
  6. LEXAPRO [Concomitant]

REACTIONS (12)
  - ASTHENIA [None]
  - DEPRESSION [None]
  - DIARRHOEA [None]
  - FATIGUE [None]
  - HAEMORRHOIDS [None]
  - HEADACHE [None]
  - INJECTION SITE URTICARIA [None]
  - NAUSEA [None]
  - RED BLOOD CELL COUNT DECREASED [None]
  - URTICARIA [None]
  - WEIGHT DECREASED [None]
  - WHITE BLOOD CELL COUNT DECREASED [None]
